FAERS Safety Report 13680467 (Version 2)
Quarter: 2017Q3

REPORT INFORMATION
  Report Type: Report from Study
  Country: None (occurrence: CA)
  Receive Date: 20170623
  Receipt Date: 20170821
  Transmission Date: 20171127
  Serious: Yes (Other)
  Sender: FDA-Public Use
  Company Number: CA-ABBVIE-17K-028-2013064-00

PATIENT
  Sex: Female

DRUGS (2)
  1. HUMIRA [Suspect]
     Active Substance: ADALIMUMAB
     Indication: PSORIATIC ARTHROPATHY
     Route: 058
     Dates: start: 201404, end: 2017
  2. RIVAROXABAN [Concomitant]
     Active Substance: RIVAROXABAN
     Indication: DEEP VEIN THROMBOSIS
     Route: 048

REACTIONS (4)
  - Deep vein thrombosis [Unknown]
  - Traumatic haemorrhage [Not Recovered/Not Resolved]
  - Traumatic haematoma [Not Recovered/Not Resolved]
  - Sports injury [Not Recovered/Not Resolved]

NARRATIVE: CASE EVENT DATE: 2015
